FAERS Safety Report 7552745-2 (Version None)
Quarter: 2011Q2

REPORT INFORMATION
  Report Type: 
  Country: None (occurrence: None)
  Receive Date: 20110616
  Receipt Date: 20110606
  Transmission Date: 20111010
  Serious: Yes (Death, Other)
  Sender: FDA-Public Use
  Company Number: US-PFIZER INC-2011131158

PATIENT
  Age: 35 Year
  Sex: Female

DRUGS (2)
  1. MS CONTIN [Suspect]
     Dosage: UNK
  2. VALIUM [Suspect]
     Dosage: UNK
     Route: 065

REACTIONS (1)
  - DEATH [None]
